FAERS Safety Report 18233609 (Version 2)
Quarter: 2020Q3

REPORT INFORMATION
  Report Type: Spontaneous
  Country: US (occurrence: US)
  Receive Date: 20200904
  Receipt Date: 20200910
  Transmission Date: 20201103
  Serious: Yes (Death, Hospitalization)
  Sender: FDA-Public Use
  Company Number: US-PFIZER INC-2020218746

PATIENT
  Age: 29 Year
  Sex: Male
  Weight: 29 kg

DRUGS (1)
  1. HEPARIN SODIUM. [Suspect]
     Active Substance: HEPARIN SODIUM
     Indication: THROMBOSIS PROPHYLAXIS
     Dosage: UNK

REACTIONS (3)
  - Intraventricular haemorrhage [Fatal]
  - Activated partial thromboplastin time prolonged [Fatal]
  - Post procedural haemorrhage [Unknown]
